FAERS Safety Report 9108454 (Version 1)
Quarter: 2013Q1

REPORT INFORMATION
  Report Type: Spontaneous
  Country: DE (occurrence: DE)
  Receive Date: 20130222
  Receipt Date: 20130222
  Transmission Date: 20140127
  Serious: Yes (Death)
  Sender: FDA-Public Use
  Company Number: DE-SHIRE-ALL1-2013-01003

PATIENT
  Age: 61 Year
  Sex: Male

DRUGS (1)
  1. VPRIV [Suspect]
     Indication: PRODUCT USED FOR UNKNOWN INDICATION
     Dosage: UNK, UNKNOWN
     Route: 041
     Dates: start: 200911

REACTIONS (1)
  - Completed suicide [Fatal]
